FAERS Safety Report 9278129 (Version 1)
Quarter: 2013Q2

REPORT INFORMATION
  Report Type: Spontaneous
  Country: US (occurrence: US)
  Receive Date: 20130508
  Receipt Date: 20130508
  Transmission Date: 20140414
  Serious: Yes (Other)
  Sender: FDA-Public Use
  Company Number: US-AMGEN-USASP2013022590

PATIENT
  Age: 96 Year
  Sex: Female
  Weight: 34.47 kg

DRUGS (2)
  1. PROLIA [Suspect]
     Indication: OSTEOPOROSIS POSTMENOPAUSAL
     Dosage: 60 MG, UNK
     Route: 058
     Dates: start: 20120203
  2. PROLIA [Suspect]
     Dosage: UNK

REACTIONS (1)
  - Radius fracture [Recovering/Resolving]
